FAERS Safety Report 5356774-9 (Version None)
Quarter: 2007Q2

REPORT INFORMATION
  Report Type: 
  Country: None (occurrence: None)
  Receive Date: 20070614
  Receipt Date: 20060727
  Transmission Date: 20071010
  Serious: No
  Sender: FDA-Public Use
  Company Number: US-ASTRAZENECA-2006UW15155

PATIENT
  Age: 84 Year
  Sex: Female
  Weight: 59.9 kg

DRUGS (3)
  1. ATACAND [Suspect]
     Route: 048
     Dates: start: 20060701
  2. ATENOLOL [Concomitant]
  3. HYDROCHLOROTHIAZIDE [Concomitant]

REACTIONS (2)
  - BALANCE DISORDER [None]
  - FEELING ABNORMAL [None]
